FAERS Safety Report 9370999 (Version 1)
Quarter: 2013Q2

REPORT INFORMATION
  Report Type: Spontaneous
  Country: AU (occurrence: AU)
  Receive Date: 20130627
  Receipt Date: 20130627
  Transmission Date: 20140414
  Serious: Yes (Other)
  Sender: FDA-Public Use
  Company Number: AU-009507513-1306AUS011792

PATIENT
  Age: 2 Year
  Sex: Male

DRUGS (1)
  1. SINGULAIR [Suspect]
     Dosage: 4 MG, DAILY
     Route: 048
     Dates: start: 20071022, end: 20100603

REACTIONS (3)
  - Abnormal behaviour [Recovering/Resolving]
  - Suicidal ideation [Recovering/Resolving]
  - Aggression [Recovering/Resolving]
